FAERS Safety Report 15822351 (Version 1)
Quarter: 2019Q1

REPORT INFORMATION
  Report Type: Spontaneous
  Country: DE (occurrence: DE)
  Receive Date: 20190114
  Receipt Date: 20190114
  Transmission Date: 20190417
  Serious: Yes (Other)
  Sender: FDA-Public Use
  Company Number: DE-GLAXOSMITHKLINE-DE2019003758

PATIENT
  Age: 60 Year
  Sex: Male
  Weight: 86 kg

DRUGS (3)
  1. METHOTREXATE. [Interacting]
     Active Substance: METHOTREXATE
     Indication: PSORIATIC ARTHROPATHY
  2. DICLOFENAC SODIUM. [Suspect]
     Active Substance: DICLOFENAC SODIUM
     Indication: ARTHRALGIA
     Dosage: 150 MG, QD
     Route: 065
  3. METHOTREXATE. [Interacting]
     Active Substance: METHOTREXATE
     Indication: PSORIASIS
     Dosage: 15 MG, WE
     Route: 065

REACTIONS (8)
  - Purpura [Unknown]
  - Toxicity to various agents [Unknown]
  - Gingivitis ulcerative [Unknown]
  - Mucosal erosion [Unknown]
  - Drug interaction [Unknown]
  - Thrombocytopenia [Unknown]
  - Agranulocytosis [Unknown]
  - Bone marrow failure [Unknown]
